FAERS Safety Report 10461260 (Version 2)
Quarter: 2014Q3

REPORT INFORMATION
  Report Type: Spontaneous
  Country: CA (occurrence: None)
  Receive Date: 20140916
  Receipt Date: 20140919
  Transmission Date: 20150326
  Serious: Yes (Hospitalization)
  Sender: FDA-Public Use
  Company Number: 2014-002709

PATIENT
  Age: 60 Year
  Sex: Female
  Weight: 57 kg

DRUGS (11)
  1. ACTONEL [Suspect]
     Active Substance: RISEDRONATE SODIUM
     Indication: OSTEOPOROSIS POSTMENOPAUSAL
     Route: 048
     Dates: start: 20140304
  2. TERIPARATIDE [Suspect]
     Active Substance: TERIPARATIDE
     Indication: OSTEOPOROSIS POSTMENOPAUSAL
     Route: 058
     Dates: start: 20140303
  3. CALCIUM (CALCIUM) [Concomitant]
     Active Substance: CALCIUM
  4. RANITIDINE [Concomitant]
     Active Substance: RANITIDINE\RANITIDINE HYDROCHLORIDE
  5. VITAMIN B12 /00056201/ (CYANOCOBALAMIN) [Concomitant]
  6. VENTOLIN /00139502/ (SALBUTAMOL SULFATE) [Concomitant]
  7. PREGABALIN (PREGABALIN) [Concomitant]
     Active Substance: PREGABALIN
  8. VITAMIN D /00107901/ (ERGOCALCIFEROL) [Concomitant]
  9. ARTHROTEC [Concomitant]
     Active Substance: DICLOFENAC SODIUM\MISOPROSTOL
  10. CO MELOXICAM (MELOXICAM) [Concomitant]
  11. ACETAMINOPHEN (PARACETAMOL) [Concomitant]
     Active Substance: ACETAMINOPHEN

REACTIONS (7)
  - Cough [None]
  - Condition aggravated [None]
  - Heart rate irregular [None]
  - Supraventricular tachycardia [None]
  - Hypertension [None]
  - Dizziness [None]
  - Emphysema [None]

NARRATIVE: CASE EVENT DATE: 20140807
